FAERS Safety Report 20636984 (Version 1)
Quarter: 2022Q1

REPORT INFORMATION
  Report Type: Spontaneous
  Country: US (occurrence: US)
  Receive Date: 20220325
  Receipt Date: 20220325
  Transmission Date: 20220424
  Serious: Yes (Other)
  Sender: FDA-Public Use
  Company Number: US-GLAXOSMITHKLINE-US2022GSK053378

PATIENT
  Sex: Male

DRUGS (4)
  1. ZANTAC [Suspect]
     Active Substance: RANITIDINE HYDROCHLORIDE
     Indication: Diabetes mellitus
     Dosage: UNK UNK, QD
     Route: 065
     Dates: start: 199403, end: 200009
  2. ZANTAC [Suspect]
     Active Substance: RANITIDINE HYDROCHLORIDE
     Indication: Arthritis
  3. ZANTAC [Suspect]
     Active Substance: RANITIDINE HYDROCHLORIDE
     Indication: Diabetes mellitus
     Dosage: UNK UNK, QD
     Route: 065
     Dates: start: 199403, end: 200009
  4. ZANTAC [Suspect]
     Active Substance: RANITIDINE HYDROCHLORIDE
     Indication: Arthritis

REACTIONS (3)
  - Prostate cancer [Unknown]
  - Spinal cord neoplasm [Unknown]
  - Neoplasm malignant [Unknown]
